FAERS Safety Report 5518441-8 (Version None)
Quarter: 2007Q4

REPORT INFORMATION
  Report Type: 
  Country: None (occurrence: None)
  Receive Date: 20071115
  Receipt Date: 20071106
  Transmission Date: 20080405
  Serious: Yes (Hospitalization)
  Sender: FDA-Public Use
  Company Number: JP-ELI_LILLY_AND_COMPANY-JP200710005469

PATIENT
  Sex: Female

DRUGS (5)
  1. EVISTA [Suspect]
     Indication: OSTEOPOROSIS POSTMENOPAUSAL
     Dosage: 60 MG, DAILY (1/D)
     Route: 048
     Dates: end: 20070101
  2. VOLTAREN-XR [Concomitant]
  3. SELBEX [Concomitant]
  4. LENDORMIN [Concomitant]
  5. MYSLEE [Concomitant]

REACTIONS (2)
  - HEAT STROKE [None]
  - VAGINAL HAEMORRHAGE [None]
